FAERS Safety Report 4507586-7 (Version None)
Quarter: 2004Q4

REPORT INFORMATION
  Report Type: 
  Country: None (occurrence: None)
  Receive Date: 20040928
  Receipt Date: 20040831
  Transmission Date: 20050328
  Serious: Yes (Hospitalization)
  Sender: FDA-Public Use
  Company Number: 04P-163-0271931-00

PATIENT
  Age: 56 Year
  Sex: Male
  Weight: 83.0083 kg

DRUGS (5)
  1. HUMIRA [Suspect]
     Indication: RHEUMATOID ARTHRITIS
     Dosage: 40 MG, 1 IN 2 WK, SUBCUTANEOUS
     Route: 058
     Dates: start: 20040101, end: 20040730
  2. METHOTREXATE [Concomitant]
  3. ROFECOXIB [Concomitant]
  4. FOLIC ACID [Concomitant]
  5. ASULFAZINE [Concomitant]

REACTIONS (1)
  - PULMONARY TUBERCULOSIS [None]
